FAERS Safety Report 8560911-2 (Version None)
Quarter: 2012Q3

REPORT INFORMATION
  Report Type: 
  Country: None (occurrence: None)
  Receive Date: 20120802
  Receipt Date: 20120726
  Transmission Date: 20120928
  Serious: Yes (Hospitalization, Other)
  Sender: FDA-Public Use
  Company Number: JP-VERTEX PHARMACEUTICALS INC.-AE-2012-004053

PATIENT
  Age: 77 Year
  Sex: Female

DRUGS (19)
  1. PEGINTERFERON ALFA-2A [Concomitant]
     Indication: HEPATITIS C
     Route: 058
     Dates: start: 20120117, end: 20120209
  2. PEGINTERFERON ALFA-2A [Concomitant]
     Route: 058
     Dates: start: 20120216, end: 20120216
  3. REBETOL [Concomitant]
     Indication: HEPATITIS C
     Route: 048
     Dates: start: 20120127, end: 20120202
  4. TELAVIC (TELAPREVIR) [Suspect]
     Route: 048
     Dates: start: 20120405, end: 20120419
  5. PEGINTERFERON ALFA-2A [Concomitant]
     Route: 058
     Dates: start: 20120223
  6. REBETOL [Concomitant]
     Route: 048
     Dates: start: 20120217, end: 20120223
  7. REBETOL [Concomitant]
     Route: 048
     Dates: start: 20120203, end: 20120216
  8. REBETOL [Concomitant]
     Route: 048
     Dates: end: 20120531
  9. URSO 250 [Concomitant]
     Route: 048
  10. PEGINTERFERON ALFA-2A [Concomitant]
     Route: 058
     Dates: start: 20120405, end: 20120426
  11. PEGINTERFERON ALFA-2A [Concomitant]
     Route: 058
     Dates: start: 20120510, end: 20120510
  12. TELAVIC (TELAPREVIR) [Suspect]
     Route: 048
     Dates: start: 20120203, end: 20120223
  13. PEGINTERFERON ALFA-2A [Concomitant]
     Route: 058
     Dates: start: 20120322, end: 20120329
  14. DEPAS [Concomitant]
  15. STEROID [Concomitant]
  16. TELAVIC (TELAPREVIR) [Suspect]
     Indication: HEPATITIS C
     Route: 048
     Dates: start: 20120127, end: 20120202
  17. PEGINTERFERON ALFA-2A [Concomitant]
     Route: 058
     Dates: end: 20120315
  18. DEPAS [Concomitant]
     Dates: start: 20120510, end: 20120524
  19. DEPAS [Concomitant]
     Dates: start: 20120524

REACTIONS (2)
  - PRESYNCOPE [None]
  - DECREASED APPETITE [None]
